FAERS Safety Report 21530167 (Version 2)
Quarter: 2022Q4

REPORT INFORMATION
  Report Type: Spontaneous
  Country: JP (occurrence: JP)
  Receive Date: 20221031
  Receipt Date: 20221101
  Transmission Date: 20230113
  Serious: Yes (Hospitalization, Other)
  Sender: FDA-Public Use
  Company Number: JP-GLAXOSMITHKLINE-JP2022JPN153345

PATIENT

DRUGS (1)
  1. VALTREX [Suspect]
     Active Substance: VALACYCLOVIR HYDROCHLORIDE
     Indication: Herpes zoster
     Dosage: 2000 MG/DAY
     Route: 048

REACTIONS (8)
  - Acute kidney injury [Recovering/Resolving]
  - Encephalopathy [Recovering/Resolving]
  - Renal impairment [Recovering/Resolving]
  - Dyslalia [Unknown]
  - Depressed level of consciousness [Recovering/Resolving]
  - Altered state of consciousness [Unknown]
  - Vomiting [Unknown]
  - Somnolence [Unknown]
